FAERS Safety Report 20011398 (Version 1)
Quarter: 2021Q4

REPORT INFORMATION
  Report Type: Spontaneous
  Country: JP (occurrence: JP)
  Receive Date: 20211029
  Receipt Date: 20211029
  Transmission Date: 20220303
  Serious: Yes (Hospitalization)
  Sender: FDA-Public Use
  Company Number: JP-EISAI-202103787_LEN-TMC_P_1

PATIENT
  Sex: Female

DRUGS (1)
  1. LENVIMA [Suspect]
     Active Substance: LENVATINIB
     Indication: Malignant neoplasm of thymus
     Route: 048
     Dates: start: 20210629, end: 20210708

REACTIONS (3)
  - Cholecystitis [Recovering/Resolving]
  - Hypertension [Recovered/Resolved]
  - Polycythaemia [Recovered/Resolved]

NARRATIVE: CASE EVENT DATE: 20210701
